FAERS Safety Report 13465441 (Version 1)
Quarter: 2017Q2

REPORT INFORMATION
  Report Type: Spontaneous
  Country: US (occurrence: US)
  Receive Date: 20170420
  Receipt Date: 20170420
  Transmission Date: 20170830
  Serious: Yes (Death)
  Sender: FDA-Public Use
  Company Number: None

PATIENT
  Age: 75 Year
  Sex: Female

DRUGS (1)
  1. SENSIPAR [Suspect]
     Active Substance: CINACALCET HYDROCHLORIDE
     Indication: HYPERPARATHYROIDISM
     Dosage: 60MG 2 TABS, ONCE DAILY BY MOUTH
     Route: 048
     Dates: start: 20150902, end: 20170329

REACTIONS (1)
  - Death [None]

NARRATIVE: CASE EVENT DATE: 20170330
